FAERS Safety Report 24797982 (Version 1)
Quarter: 2025Q1

REPORT INFORMATION
  Report Type: Spontaneous
  Country: US (occurrence: US)
  Receive Date: 20250102
  Receipt Date: 20250102
  Transmission Date: 20250409
  Serious: Yes (Other)
  Sender: ABBVIE
  Company Number: US-ABBVIE-6067051

PATIENT
  Sex: Female

DRUGS (1)
  1. BOTOX [Suspect]
     Active Substance: ONABOTULINUMTOXINA
     Indication: Product used for unknown indication
     Route: 065
     Dates: start: 2019, end: 2019

REACTIONS (6)
  - Jaw operation [Unknown]
  - Weight decreased [Unknown]
  - Facial pain [Unknown]
  - Ankylosing spondylitis [Unknown]
  - Orthognathic surgery [Unknown]
  - Trismus [Unknown]
